FAERS Safety Report 7352573-7 (Version None)
Quarter: 2011Q1

REPORT INFORMATION
  Report Type: 
  Country: None (occurrence: None)
  Receive Date: 20110304
  Receipt Date: 20110221
  Transmission Date: 20110831
  Serious: Yes (Hospitalization)
  Sender: FDA-Public Use
  Company Number: 2010SP002506

PATIENT
  Age: 59 Year
  Sex: Male
  Weight: 93.4 kg

DRUGS (11)
  1. HYDROCHLOROTHIAZIDE [Concomitant]
  2. ARFORMOTEROL [Suspect]
     Indication: CHRONIC OBSTRUCTIVE PULMONARY DISEASE
     Dosage: 15 UG; BID; INHALATION
     Route: 055
     Dates: start: 20100203, end: 20100524
  3. CLINDAMYCIN [Concomitant]
  4. LOVASTATIN [Concomitant]
  5. ALBUTEROL [Concomitant]
  6. METFORMIN HCL [Concomitant]
  7. NIASPAN [Concomitant]
  8. LISINOPRIL [Concomitant]
  9. WARFARIN [Concomitant]
  10. OMEPRAZOLE [Concomitant]
  11. METOPROLOL TARTRATE [Concomitant]

REACTIONS (14)
  - COUGH [None]
  - UPPER-AIRWAY COUGH SYNDROME [None]
  - CLOSTRIDIAL INFECTION [None]
  - ASTHENIA [None]
  - CONSTIPATION [None]
  - FATIGUE [None]
  - SNEEZING [None]
  - RENAL FAILURE ACUTE [None]
  - ATRIAL FIBRILLATION [None]
  - BLOOD PRESSURE DECREASED [None]
  - DIZZINESS [None]
  - DECREASED APPETITE [None]
  - OROPHARYNGEAL PAIN [None]
  - RESPIRATORY RATE INCREASED [None]
